FAERS Safety Report 15690780 (Version 2)
Quarter: 2019Q1

REPORT INFORMATION
  Report Type: Report from Study
  Country: CO (occurrence: CO)
  Receive Date: 20181205
  Receipt Date: 20190331
  Transmission Date: 20190417
  Serious: Yes (Life-Threatening, Hospitalization, Other)
  Sender: FDA-Public Use
  Company Number: CO-INCYTE CORPORATION-2017IN003715

PATIENT

DRUGS (14)
  1. JAKAVI [Suspect]
     Active Substance: RUXOLITINIB
     Dosage: 1 DF, QD (20MG)
     Route: 048
  2. JAKAVI [Suspect]
     Active Substance: RUXOLITINIB
     Dosage: 10 MG, QD (ONCE DAILY)
     Route: 048
     Dates: start: 20171024
  3. JAKAVI [Suspect]
     Active Substance: RUXOLITINIB
     Dosage: 10 MG, QD
     Route: 048
  4. FOLIC ACID. [Concomitant]
     Active Substance: FOLIC ACID
     Indication: PRODUCT USED FOR UNKNOWN INDICATION
     Route: 065
  5. JAKAVI [Suspect]
     Active Substance: RUXOLITINIB
     Dosage: 1 DF, QD (DURING FASTING)
     Route: 048
     Dates: start: 20170410
  6. SUGASTRIN [Concomitant]
     Indication: PRODUCT USED FOR UNKNOWN INDICATION
     Route: 065
  7. CALCITRIOL. [Concomitant]
     Active Substance: CALCITRIOL
     Indication: PRODUCT USED FOR UNKNOWN INDICATION
     Dosage: UNK
     Route: 065
  8. ESOMEPRAZOLE. [Concomitant]
     Active Substance: ESOMEPRAZOLE MAGNESIUM
     Indication: PRODUCT USED FOR UNKNOWN INDICATION
     Route: 065
  9. JAKAVI [Suspect]
     Active Substance: RUXOLITINIB
     Indication: MYELOFIBROSIS
     Dosage: 2 DF, QD (20 MG)
     Route: 048
     Dates: start: 20150605
  10. JAKAVI [Suspect]
     Active Substance: RUXOLITINIB
     Dosage: 2 DF, QD (20 MG) (3 MONTHS AGO)
     Route: 048
  11. JAKAVI [Suspect]
     Active Substance: RUXOLITINIB
     Dosage: 1 DF, QD (20 MG)
     Route: 048
     Dates: start: 201605
  12. ALLOPURINOL. [Concomitant]
     Active Substance: ALLOPURINOL
     Indication: RENAL DISORDER
  13. ALLOPURINOL. [Concomitant]
     Active Substance: ALLOPURINOL
     Indication: RENAL DISORDER
     Dosage: UNK
     Route: 065
  14. PROPRANOLOL HYDROCHLORIDE. [Concomitant]
     Active Substance: PROPRANOLOL HYDROCHLORIDE
     Indication: PRODUCT USED FOR UNKNOWN INDICATION
     Route: 065

REACTIONS (14)
  - Varices oesophageal [Recovering/Resolving]
  - Haematemesis [Recovering/Resolving]
  - Platelet count decreased [Recovering/Resolving]
  - Blood iron decreased [Unknown]
  - Weight decreased [Unknown]
  - Renal pain [Unknown]
  - Inappropriate schedule of product administration [Unknown]
  - Haemorrhage [Recovering/Resolving]
  - Renal failure [Unknown]
  - Immunosuppression [Unknown]
  - Diarrhoea haemorrhagic [Recovering/Resolving]
  - Haemoglobin decreased [Recovering/Resolving]
  - Blood uric acid increased [Unknown]
  - Asthenia [Recovering/Resolving]
